FAERS Safety Report 14677832 (Version 1)
Quarter: 2018Q1

REPORT INFORMATION
  Report Type: Spontaneous
  Country: FR (occurrence: FR)
  Receive Date: 20180326
  Receipt Date: 20180326
  Transmission Date: 20180509
  Serious: Yes (Other)
  Sender: FDA-Public Use
  Company Number: FR-MERCK KGAA-2044474

PATIENT
  Age: 69 Year
  Sex: Female

DRUGS (1)
  1. NOVOTHYROX [Suspect]
     Active Substance: LEVOTHYROXINE SODIUM
     Indication: PRODUCT USED FOR UNKNOWN INDICATION

REACTIONS (28)
  - Aphasia [Recovering/Resolving]
  - Fluid retention [Recovering/Resolving]
  - Dry mouth [Recovering/Resolving]
  - Alopecia [Recovering/Resolving]
  - Poor quality sleep [Recovering/Resolving]
  - Fatigue [Recovering/Resolving]
  - Dizziness [Recovering/Resolving]
  - Fall [Recovering/Resolving]
  - Dysgraphia [Recovering/Resolving]
  - Nausea [Recovering/Resolving]
  - Bone pain [Recovering/Resolving]
  - Weight increased [Recovering/Resolving]
  - Eye haemorrhage [Recovering/Resolving]
  - Pain in extremity [Recovering/Resolving]
  - Balance disorder [Recovering/Resolving]
  - Glomerular filtration rate decreased [Recovering/Resolving]
  - Joint swelling [Recovering/Resolving]
  - Dry skin [Recovering/Resolving]
  - Reading disorder [Recovering/Resolving]
  - High density lipoprotein increased [Recovering/Resolving]
  - Dementia Alzheimer^s type [Recovering/Resolving]
  - Dyspnoea [Recovering/Resolving]
  - Eyelid disorder [Recovering/Resolving]
  - C-reactive protein increased [Recovering/Resolving]
  - Gait disturbance [Recovering/Resolving]
  - Arrhythmia [Recovering/Resolving]
  - Renal pain [Recovering/Resolving]
  - Dysstasia [Recovering/Resolving]

NARRATIVE: CASE EVENT DATE: 20170711
